FAERS Safety Report 11946598 (Version 1)
Quarter: 2016Q1

REPORT INFORMATION
  Report Type: Report from Study
  Country: US (occurrence: US)
  Receive Date: 20160125
  Receipt Date: 20160125
  Transmission Date: 20160526
  Serious: No
  Sender: FDA-Public Use
  Company Number: US-AMGEN-USASL2015139860

PATIENT
  Age: 73 Year
  Sex: Female
  Weight: 53.97 kg

DRUGS (1)
  1. REPATHA [Suspect]
     Active Substance: EVOLOCUMAB
     Indication: HYPERCHOLESTEROLAEMIA
     Dosage: 140 MG, Q2WK
     Route: 058

REACTIONS (4)
  - Nausea [Unknown]
  - Bone pain [Recovered/Resolved]
  - Back pain [Unknown]
  - Influenza [Recovered/Resolved]
